FAERS Safety Report 4751294-4 (Version None)
Quarter: 2005Q3

REPORT INFORMATION
  Report Type: 
  Country: None (occurrence: None)
  Receive Date: 20050822
  Receipt Date: 20050811
  Transmission Date: 20060218
  Serious: Yes (Hospitalization, Other)
  Sender: FDA-Public Use
  Company Number: 2005-07-0831

PATIENT
  Sex: Female

DRUGS (6)
  1. TEMODAR [Suspect]
     Indication: ANAPLASTIC ASTROCYTOMA
     Dosage: 80-200MG QD* ORAL
     Route: 048
     Dates: start: 20050414, end: 20050525
  2. TEMODAR [Suspect]
     Indication: ANAPLASTIC ASTROCYTOMA
     Dosage: 80-200MG QD* ORAL
     Route: 048
     Dates: start: 20050414, end: 20050626
  3. TEMODAR [Suspect]
     Indication: ANAPLASTIC ASTROCYTOMA
     Dosage: 80-200MG QD* ORAL
     Route: 048
     Dates: start: 20050622, end: 20050626
  4. PENTAMIDINE INJECTABLE [Suspect]
     Indication: INFECTION PROPHYLAXIS
     Dosage: 130 MG INTRAVENOUS 2 DOSES
     Route: 042
  5. TRANSFER FACTOR [Concomitant]
  6. RADIATION THERAPY [Concomitant]

REACTIONS (1)
  - PANCREATITIS ACUTE [None]
